FAERS Safety Report 15017886 (Version 1)
Quarter: 2018Q2

REPORT INFORMATION
  Report Type: Spontaneous
  Country: ES (occurrence: ES)
  Receive Date: 20180615
  Receipt Date: 20180615
  Transmission Date: 20180711
  Serious: Yes (Hospitalization)
  Sender: FDA-Public Use
  Company Number: ES-TEVA-2018-ES-907925

PATIENT
  Age: 72 Year
  Sex: Male
  Weight: 60 kg

DRUGS (16)
  1. GEMFIBROZILO (637A) [Concomitant]
     Dosage: 900 MILLIGRAM DAILY;
     Route: 048
  2. FUROSEMIDA (1615A) [Concomitant]
     Active Substance: FUROSEMIDE
     Dosage: 40 MILLIGRAM DAILY;
     Route: 048
  3. PARACETAMOL (12A) [Concomitant]
     Active Substance: ACETAMINOPHEN
     Route: 048
  4. EZETROL 10 MG COMPRIMIDOS , 28 COMPRIMIDOS [Concomitant]
     Dosage: 10 MILLIGRAM DAILY;
     Route: 048
  5. SINTROM [Concomitant]
     Active Substance: ACENOCOUMAROL
     Route: 065
  6. CARVEDILOL (2431A) [Suspect]
     Active Substance: CARVEDILOL
     Route: 048
     Dates: start: 2014, end: 20180415
  7. DIGOXINA TEOFARMA 0,25 MG COMPRIMIDOS , 50 COMPRIMIDOS [Suspect]
     Active Substance: DIGOXIN
     Indication: ATRIAL FIBRILLATION
     Route: 048
     Dates: start: 2014, end: 20180415
  8. PARICALCITOL (2860A) [Concomitant]
     Dosage: 1 MICROGRAM DAILY;
     Route: 048
  9. ATORVASTATINA (7400A) [Concomitant]
     Active Substance: ATORVASTATIN
     Dosage: 40 MILLIGRAM DAILY;
     Route: 048
  10. ADENURIC  80 MG COMPRIMIDOS RECUBIERTOS CON PELICULA, 28 COMPRIMIDOS [Concomitant]
     Dosage: 80 MILLIGRAM DAILY;
     Route: 048
  11. TERBASMIN TURBUHALER 500 MICROGRAMOS/INHALACION POLVO PARA INHALACION(TERBUTALINE) [Concomitant]
     Active Substance: TERBUTALINE
     Route: 055
  12. ALFUZOSINA (7009A) [Concomitant]
     Dosage: 10 MILLIGRAM DAILY;
     Route: 048
  13. OMEPRAZOL (2141A) [Concomitant]
     Active Substance: OMEPRAZOLE
     Dosage: 20 MILLIGRAM DAILY;
     Route: 048
  14. SYMBICORT TURBUHALER 160 MICROGRAMOS/4,5 MICROGRAMOS/INHALACION  POLVO [Concomitant]
     Route: 055
  15. LEFLUNOMIDA (7414A) [Concomitant]
     Active Substance: LEFLUNOMIDE
     Dosage: 10 MILLIGRAM DAILY;
     Route: 048
  16. RAMIPRIL (2497A) [Concomitant]
     Active Substance: RAMIPRIL
     Dosage: 2.5 MILLIGRAM DAILY;
     Route: 048

REACTIONS (2)
  - Toxicity to various agents [Recovered/Resolved]
  - Bradycardia [Recovered/Resolved]

NARRATIVE: CASE EVENT DATE: 20180415
